FAERS Safety Report 4269427-5 (Version None)
Quarter: 2004Q1

REPORT INFORMATION
  Report Type: 
  Country: None (occurrence: None)
  Receive Date: 20040109
  Receipt Date: 20031229
  Transmission Date: 20041129
  Serious: Yes (Hospitalization)
  Sender: FDA-Public Use
  Company Number: 203481

PATIENT
  Age: 57 Year
  Sex: Female
  Weight: 63 kg

DRUGS (2)
  1. MABTHERA(RITUXIMAB) CONC FOR MABTHERA(RITUXIMAB) CONC FOR SOLUTION FOR [Suspect]
     Indication: CRYOGLOBULINAEMIA
     Dosage: 375 MG/M2, INTRAVENOUS
     Route: 042
     Dates: start: 20031107
  2. CYCLOPHOSPHAMIDE [Concomitant]

REACTIONS (5)
  - C-REACTIVE PROTEIN DECREASED [None]
  - HAEMOGLOBIN DECREASED [None]
  - LEUKOCYTOSIS [None]
  - LYMPHOCYTOSIS [None]
  - NEUTROPHILIA [None]
